FAERS Safety Report 24002255 (Version 1)
Quarter: 2024Q2

REPORT INFORMATION
  Report Type: Report from Study
  Country: CO (occurrence: CO)
  Receive Date: 20240622
  Receipt Date: 20240622
  Transmission Date: 20240716
  Serious: Yes (Other)
  Sender: FDA-Public Use
  Company Number: CO-UNITED THERAPEUTICS-UNT-2024-015949

PATIENT
  Age: 35 Year
  Weight: 55 kg

DRUGS (3)
  1. TREPROSTINIL SODIUM [Suspect]
     Active Substance: TREPROSTINIL SODIUM
     Indication: Pulmonary hypertension
     Dosage: UNK, CONTINUING (RESTARTED)
  2. TREPROSTINIL SODIUM [Suspect]
     Active Substance: TREPROSTINIL SODIUM
     Dosage: 0.010 ?G/KG (AT THE INFUSION RATE OF 0.007 ML/HR), CONTINUING
  3. TREPROSTINIL SODIUM [Suspect]
     Active Substance: TREPROSTINIL SODIUM
     Dosage: UNK, CONTINUING

REACTIONS (6)
  - Catheter site pain [Recovering/Resolving]
  - Catheter site oedema [Recovering/Resolving]
  - Pulmonary hypertension [Unknown]
  - Intentional medical device removal by patient [Unknown]
  - Therapy non-responder [Unknown]
  - Off label use [Recovered/Resolved]
